FAERS Safety Report 4588939-8 (Version None)
Quarter: 2005Q1

REPORT INFORMATION
  Report Type: 
  Country: None (occurrence: None)
  Receive Date: 20050216
  Receipt Date: 20050130
  Transmission Date: 20050727
  Serious: Yes (Other)
  Sender: FDA-Public Use
  Company Number: US_0502111748

PATIENT
  Age: 10 Year
  Sex: Male

DRUGS (1)
  1. PROZAC [Suspect]

REACTIONS (1)
  - MURDER [None]
